FAERS Safety Report 12857660 (Version 1)
Quarter: 2016Q4

REPORT INFORMATION
  Report Type: Spontaneous
  Country: KR (occurrence: KR)
  Receive Date: 20161018
  Receipt Date: 20161018
  Transmission Date: 20170207
  Serious: Yes (Death, Hospitalization, Other)
  Sender: FDA-Public Use
  Company Number: KR-MYLANLABS-2016M1044401

PATIENT

DRUGS (5)
  1. CISPLATIN. [Suspect]
     Active Substance: CISPLATIN
     Indication: GALLBLADDER CANCER
     Dosage: 25 MG/M2 ON DAY 1, DAY 8 IN A 21-DAY CYCLE
     Route: 065
  2. CISPLATIN. [Suspect]
     Active Substance: CISPLATIN
     Dosage: 60 MG/M2 ON DAY 1 IN A 21-DAY CYCLE
     Route: 065
  3. CAPECITABINE. [Suspect]
     Active Substance: CAPECITABINE
     Indication: GALLBLADDER CANCER
     Dosage: 2000 MG/M2 ON DAY 1 TO 14 IN A 21-DAY CYCLE
     Route: 065
  4. GEMCITABINE [Suspect]
     Active Substance: GEMCITABINE\GEMCITABINE HYDROCHLORIDE
     Indication: GALLBLADDER CANCER
     Dosage: 1 G/M2 ON DAY 1, DAY 8 IN A 21-DAY CYCLE
     Route: 065
  5. FLUOROURACIL. [Suspect]
     Active Substance: FLUOROURACIL
     Indication: GALLBLADDER CANCER
     Route: 065

REACTIONS (8)
  - Pneumonia [Recovered/Resolved]
  - Metabolic encephalopathy [Fatal]
  - Haematochezia [Unknown]
  - Hepatic infarction [Fatal]
  - Embolism [Fatal]
  - Thrombocytopenia [Unknown]
  - Prothrombin time prolonged [Unknown]
  - Cardiac arrest [Fatal]
